FAERS Safety Report 7114622-0 (Version None)
Quarter: 2010Q4

REPORT INFORMATION
  Report Type: 
  Country: None (occurrence: None)
  Receive Date: 20101121
  Receipt Date: 20101108
  Transmission Date: 20110411
  Serious: Yes (Hospitalization)
  Sender: FDA-Public Use
  Company Number: US-ELI_LILLY_AND_COMPANY-US201011002452

PATIENT
  Age: 38 Year
  Sex: Female

DRUGS (6)
  1. CYMBALTA [Suspect]
     Indication: ANXIETY
     Dosage: 30 MG, UNK
     Dates: start: 20080801
  2. CYMBALTA [Suspect]
     Dosage: 60 MG, UNK
  3. CYMBALTA [Suspect]
     Dosage: 60 MG, 2/D
  4. CYMBALTA [Suspect]
     Dosage: 60 MG, UNK
  5. CYMBALTA [Suspect]
     Dosage: 30 MG, UNK
  6. ESTRADIOL [Concomitant]

REACTIONS (13)
  - CRYING [None]
  - DISORIENTATION [None]
  - DIZZINESS [None]
  - HYPOAESTHESIA FACIAL [None]
  - HYSTERECTOMY [None]
  - IMPAIRED DRIVING ABILITY [None]
  - INFLUENZA LIKE ILLNESS [None]
  - MALAISE [None]
  - NAUSEA [None]
  - PAIN [None]
  - PARAESTHESIA [None]
  - PYREXIA [None]
  - WITHDRAWAL SYNDROME [None]
